FAERS Safety Report 22607460 (Version 2)
Quarter: 2024Q2

REPORT INFORMATION
  Report Type: Spontaneous
  Country: CA (occurrence: CA)
  Receive Date: 20230616
  Receipt Date: 20240501
  Transmission Date: 20240716
  Serious: Yes (Hospitalization, Other)
  Sender: FDA-Public Use
  Company Number: CA-AUROBINDO-AUR-APL-2023-042155

PATIENT
  Age: 25 Year
  Sex: Female

DRUGS (10)
  1. FLECAINIDE [Suspect]
     Active Substance: FLECAINIDE
     Indication: Supraventricular tachycardia
     Dosage: UNK
     Route: 065
  2. LIDOCAINE [Suspect]
     Active Substance: LIDOCAINE
     Indication: Product used for unknown indication
     Dosage: 50 MILLIGRAM
     Route: 065
  3. HEPARIN [Suspect]
     Active Substance: HEPARIN SODIUM
     Indication: Product used for unknown indication
     Dosage: UNK
     Route: 065
  4. FENTANYL [Suspect]
     Active Substance: FENTANYL\FENTANYL CITRATE
     Indication: Anaesthesia
     Dosage: 30 MICROGRAM
     Route: 065
  5. ISOPROTERENOL [Suspect]
     Active Substance: ISOPROTERENOL
     Indication: Product used for unknown indication
     Dosage: UNK
     Route: 065
  6. MIDAZOLAM [Suspect]
     Active Substance: MIDAZOLAM
     Indication: Anaesthesia
     Dosage: 1 MILLIGRAM
     Route: 065
  7. PROPOFOL [Suspect]
     Active Substance: PROPOFOL
     Indication: Anaesthesia
     Dosage: 30-50 MCG/KG/MIN
     Route: 065
  8. PROTAMINE [Suspect]
     Active Substance: PROTAMINE
     Indication: Product used for unknown indication
     Dosage: UNK
     Route: 065
  9. SOTALOL [Suspect]
     Active Substance: SOTALOL
     Indication: Supraventricular tachycardia
     Dosage: UNK
     Route: 065
  10. LIDOCAINE [Suspect]
     Active Substance: LIDOCAINE
     Indication: Anaesthesia
     Dosage: 50 MILLIGRAM
     Route: 061

REACTIONS (2)
  - Exposure during pregnancy [Unknown]
  - Treatment failure [Unknown]
